FAERS Safety Report 25574024 (Version 3)
Quarter: 2025Q4

REPORT INFORMATION
  Report Type: Spontaneous
  Country: US (occurrence: US)
  Receive Date: 20250717
  Receipt Date: 20251205
  Transmission Date: 20260117
  Serious: Yes (Other)
  Sender: MERCK SHARP & DOHME LLC
  Company Number: US-009507513-2309971

PATIENT
  Sex: Male
  Weight: 91.6 kg

DRUGS (14)
  1. WINREVAIR [Suspect]
     Active Substance: SOTATERCEPT-CSRK
     Indication: Product used for unknown indication
     Dosage: UNK [LOWERED DOSE]
     Dates: start: 2025
  2. WINREVAIR [Suspect]
     Active Substance: SOTATERCEPT-CSRK
     Dosage: UNK
  3. WINREVAIR [Suspect]
     Active Substance: SOTATERCEPT-CSRK
  4. WINREVAIR [Suspect]
     Active Substance: SOTATERCEPT-CSRK
  5. BACTRIM [Suspect]
     Active Substance: SULFAMETHOXAZOLE\TRIMETHOPRIM
     Indication: Product used for unknown indication
     Dosage: UNK, COURSE COMPLETED
  6. REMODULIN [Suspect]
     Active Substance: TREPROSTINIL
     Indication: Pulmonary arterial hypertension
     Dosage: CONCENTRATION 10.0 MG/ML, UNK, CONTINUING, SUBCUTANEOUS USE
     Route: 058
     Dates: start: 20211209
  7. REMODULIN [Suspect]
     Active Substance: TREPROSTINIL
     Indication: Pulmonary arterial hypertension
     Dosage: CONCENTRATION 10.0 MG/ML, 0.055 ?G/KG, CONTINUOUS VIA SUBCUTANEOUS (SQ) ROUTE
     Route: 058
  8. IRON [Concomitant]
     Active Substance: IRON
  9. FLUTICASONE PROPIONATE [Concomitant]
     Active Substance: FLUTICASONE PROPIONATE
  10. OMEPRAZOLE [Concomitant]
     Active Substance: OMEPRAZOLE
  11. TADALAFIL [Concomitant]
     Active Substance: TADALAFIL
  12. ALBUTEROL SULFATE [Concomitant]
     Active Substance: ALBUTEROL SULFATE
  13. OPSUMIT [Concomitant]
     Active Substance: MACITENTAN
  14. OXYGEN [Concomitant]
     Active Substance: OXYGEN

REACTIONS (2)
  - Thrombocytopenia [Unknown]
  - Laboratory test abnormal [Unknown]

NARRATIVE: CASE EVENT DATE: 20250101
